FAERS Safety Report 8014038-9 (Version None)
Quarter: 2011Q4

REPORT INFORMATION
  Report Type: 
  Country: None (occurrence: None)
  Receive Date: 20111229
  Receipt Date: 20111221
  Transmission Date: 20120403
  Serious: Yes (Hospitalization)
  Sender: FDA-Public Use
  Company Number: US-BAYER-2011-073153

PATIENT
  Age: 20 Year
  Sex: Female
  Weight: 77.098 kg

DRUGS (2)
  1. YAZ [Suspect]
     Indication: ABDOMINAL PAIN
  2. YAZ [Suspect]
     Indication: PREMENSTRUAL SYNDROME
     Dosage: UNK
     Dates: start: 20060901, end: 20100701

REACTIONS (9)
  - BILIARY COLIC [None]
  - NAUSEA [None]
  - CHOLELITHIASIS [None]
  - ABDOMINAL PAIN UPPER [None]
  - VOMITING [None]
  - CHOLECYSTITIS INFECTIVE [None]
  - GALLBLADDER ENLARGEMENT [None]
  - BILIARY DILATATION [None]
  - CHOLECYSTITIS ACUTE [None]
